FAERS Safety Report 17213255 (Version 2)
Quarter: 2019Q4

REPORT INFORMATION
  Report Type: Spontaneous
  Country: PG (occurrence: PG)
  Receive Date: 20191230
  Receipt Date: 20191230
  Transmission Date: 20200122
  Serious: Yes (Hospitalization, Other)
  Sender: FDA-Public Use
  Company Number: PG-JNJFOC-20191233251

PATIENT
  Age: 38 Year
  Sex: Female
  Weight: 50 kg

DRUGS (7)
  1. BEDAQUILINE [Interacting]
     Active Substance: BEDAQUILINE
     Dates: start: 20191004, end: 20191216
  2. LEVOFLOXACIN. [Interacting]
     Active Substance: LEVOFLOXACIN
     Indication: TUBERCULOSIS
     Dates: start: 20190913, end: 20191216
  3. SEPTRIN [Concomitant]
     Active Substance: SULFAMETHOXAZOLE\TRIMETHOPRIM
     Indication: HIV INFECTION
     Dates: start: 20190913, end: 20191216
  4. CLOFAZIMINE [Interacting]
     Active Substance: CLOFAZIMINE
     Indication: TUBERCULOSIS
     Dates: start: 20190913, end: 20191216
  5. LINEZOLID. [Interacting]
     Active Substance: LINEZOLID
     Indication: TUBERCULOSIS
     Dates: start: 20190913, end: 20191216
  6. LAMIVUDINE;NEVIRAPINE;TENOFOVIR [Concomitant]
     Indication: HIV INFECTION
     Dosage: 300/300/200
     Dates: start: 20190913, end: 20191216
  7. BEDAQUILINE [Suspect]
     Active Substance: BEDAQUILINE
     Indication: TUBERCULOSIS
     Route: 048
     Dates: start: 20190913, end: 20191004

REACTIONS (13)
  - Anaemia [Unknown]
  - Vomiting [Recovering/Resolving]
  - Electrocardiogram QT prolonged [Unknown]
  - Off label use [Unknown]
  - Asthenia [Unknown]
  - Dizziness [Unknown]
  - Product use issue [Unknown]
  - Abdominal pain upper [Unknown]
  - Headache [Recovering/Resolving]
  - Drug interaction [Unknown]
  - Hypomagnesaemia [Unknown]
  - Aspartate aminotransferase increased [Unknown]
  - Hypoglycaemia [Unknown]

NARRATIVE: CASE EVENT DATE: 20190913
